FAERS Safety Report 7324809-X (Version None)
Quarter: 2011Q1

REPORT INFORMATION
  Report Type: 
  Country: None (occurrence: None)
  Receive Date: 20110301
  Receipt Date: 20110222
  Transmission Date: 20110831
  Serious: Yes (Other)
  Sender: FDA-Public Use
  Company Number: US-US-EMD SERONO, INC.-7014305

PATIENT
  Sex: Female

DRUGS (1)
  1. REBIF [Suspect]
     Indication: PRODUCT USED FOR UNKNOWN INDICATION
     Route: 058
     Dates: start: 20100607, end: 20101201

REACTIONS (4)
  - LIVER FUNCTION TEST ABNORMAL [None]
  - INJECTION SITE NECROSIS [None]
  - HYPERHIDROSIS [None]
  - CARDIAC STRESS TEST ABNORMAL [None]
